FAERS Safety Report 7523846-X (Version None)
Quarter: 2011Q2

REPORT INFORMATION
  Report Type: 
  Country: None (occurrence: None)
  Receive Date: 20110603
  Receipt Date: 20110520
  Transmission Date: 20111010
  Serious: Yes (Hospitalization)
  Sender: FDA-Public Use
  Company Number: FR-GENENTECH-318926

PATIENT
  Sex: Male
  Weight: 78 kg

DRUGS (20)
  1. CISPLATIN [Suspect]
     Indication: MANTLE CELL LYMPHOMA
     Dosage: 200 MG, Q21D
     Route: 042
     Dates: start: 20090914, end: 20091130
  2. DEXAMETHASONE [Suspect]
     Dosage: 40 MG, UNK
     Route: 042
     Dates: start: 20091008, end: 20091011
  3. PRAVASTATIN [Concomitant]
     Indication: HYPERCHOLESTEROLAEMIA
     Dosage: UNK
     Route: 048
     Dates: start: 20090913
  4. DEXAMETHASONE [Suspect]
     Indication: MANTLE CELL LYMPHOMA
     Dosage: 40 MG, UNK
     Route: 042
     Dates: start: 20090914, end: 20091203
  5. CYTARABINE [Suspect]
     Dosage: 4 G, UNK
     Route: 042
     Dates: start: 20091009
  6. RITUXIMAB [Suspect]
     Indication: MANTLE CELL LYMPHOMA
     Dosage: 700 MG, Q21D
     Route: 042
     Dates: start: 20090918, end: 20091130
  7. CISPLATIN [Suspect]
     Dosage: 200 MG, UNK
     Route: 042
     Dates: start: 20091008
  8. SOTALOL HCL [Concomitant]
     Indication: ATRIAL FIBRILLATION
     Dosage: UNK
     Dates: start: 20091001
  9. RITUXIMAB [Suspect]
     Dosage: 700 MG, UNK
     Route: 042
     Dates: start: 20091008
  10. CISPLATIN [Suspect]
     Dosage: 200 MG, UNK
     Route: 042
     Dates: start: 20091130
  11. DEXAMETHASONE [Suspect]
     Dosage: 40 MG, UNK
     Route: 042
  12. CYTARABINE [Suspect]
     Indication: MANTLE CELL LYMPHOMA
     Dosage: 4 G, Q21D
     Route: 042
     Dates: start: 20090915, end: 20091201
  13. CYTARABINE [Suspect]
     Dosage: 4 G, UNK
     Route: 042
     Dates: start: 20091201
  14. LEDERFOLINE [Concomitant]
     Indication: PROPHYLAXIS
     Dosage: UNK
     Route: 048
     Dates: start: 20090920
  15. ATOVAQUONE [Concomitant]
     Indication: INFECTION PROPHYLAXIS
     Dosage: UNK
     Route: 048
     Dates: start: 20091012
  16. OMEPRAZOLE [Concomitant]
     Indication: PROPHYLAXIS
     Dosage: UNK
     Route: 048
     Dates: start: 20090915
  17. BACTRIM [Concomitant]
     Indication: INFECTION PROPHYLAXIS
     Dosage: UNK
     Route: 048
     Dates: start: 20090920
  18. BARACLUDE [Concomitant]
     Indication: ANTIVIRAL TREATMENT
     Dosage: UNK
     Route: 048
     Dates: start: 20091008
  19. LOVENOX [Concomitant]
     Indication: THROMBOSIS PROPHYLAXIS
     Dosage: UNK
     Route: 058
     Dates: start: 20091029
  20. RITUXIMAB [Suspect]
     Dosage: 700 MG, UNK
     Route: 042
     Dates: start: 20091130

REACTIONS (6)
  - ATRIOVENTRICULAR BLOCK [None]
  - HYPOKALAEMIA [None]
  - ATRIOVENTRICULAR BLOCK COMPLETE [None]
  - PNEUMONIA [None]
  - RENAL FAILURE [None]
  - FEBRILE BONE MARROW APLASIA [None]
